FAERS Safety Report 5995163-0 (Version None)
Quarter: 2008Q4

REPORT INFORMATION
  Report Type: 
  Country: None (occurrence: None)
  Receive Date: 20081212
  Receipt Date: 20080610
  Transmission Date: 20090506
  Serious: No
  Sender: FDA-Public Use
  Company Number: US-AMGEN-KDL286010

PATIENT
  Sex: Female

DRUGS (3)
  1. ENBREL [Suspect]
     Indication: RHEUMATOID ARTHRITIS
     Route: 058
     Dates: start: 20080501
  2. SULFASALAZINE [Concomitant]
     Dates: start: 20080101
  3. METHOTREXATE [Concomitant]
     Dates: start: 20071001

REACTIONS (5)
  - ARTHRALGIA [None]
  - BACK PAIN [None]
  - PAIN [None]
  - RASH ERYTHEMATOUS [None]
  - RHEUMATOID ARTHRITIS [None]
